FAERS Safety Report 8339392-X (Version None)
Quarter: 2012Q2

REPORT INFORMATION
  Report Type: 
  Country: None (occurrence: None)
  Receive Date: 20120507
  Receipt Date: 20120427
  Transmission Date: 20120825
  Serious: Yes (Hospitalization)
  Sender: FDA-Public Use
  Company Number: US-BAYER-2011-075040

PATIENT
  Age: 22 Year
  Sex: Female
  Weight: 62.585 kg

DRUGS (3)
  1. YASMIN [Suspect]
     Dosage: UNK
     Dates: start: 20040101, end: 20090101
  2. YAZ [Suspect]
     Dosage: UNK
     Dates: start: 20040101, end: 20090101
  3. MIDRIN [Concomitant]
     Dosage: UNK
     Dates: start: 20040101, end: 20080101

REACTIONS (3)
  - GALLBLADDER INJURY [None]
  - INJURY [None]
  - PAIN [None]
